FAERS Safety Report 18955167 (Version 8)
Quarter: 2021Q4

REPORT INFORMATION
  Report Type: Report from Study
  Country: CN (occurrence: None)
  Receive Date: 20210301
  Receipt Date: 20211224
  Transmission Date: 20220303
  Serious: Yes (Hospitalization, Disabling)
  Sender: FDA-Public Use
  Company Number: CN-ROCHE-2773486

PATIENT
  Age: 33 Year
  Sex: Male
  Weight: 73 kg

DRUGS (28)
  1. EMICIZUMAB [Suspect]
     Active Substance: EMICIZUMAB
     Indication: Factor VIII deficiency
     Dosage: ON 17/FEB/2021, HE RECEIVED THE LAST DOSE OF SUBCUTANEOUS EMICIZUMAB 0.73 MG PRIOR TO THE ONSET OF S
     Route: 058
     Dates: start: 20180710
  2. ANTIHEMOPHILIC FACTOR HUMAN [Concomitant]
     Active Substance: ANTIHEMOPHILIC FACTOR HUMAN
     Indication: Haemophilia
  3. NORFLOXACIN [Concomitant]
     Active Substance: NORFLOXACIN
     Indication: Diarrhoea
     Route: 048
     Dates: start: 20210726, end: 20210727
  4. MONTMORILLONITE [Concomitant]
     Active Substance: MONTMORILLONITE
     Indication: Diarrhoea
     Route: 048
     Dates: start: 20210726, end: 20210727
  5. BACILLUS LICHENIFORMIS CAPSULE,LIVE [Concomitant]
     Indication: Gastrointestinal mucosal disorder
     Route: 048
     Dates: start: 20210810, end: 20210818
  6. LACIDOPHILIN [Concomitant]
     Indication: Gastrointestinal mucosal disorder
     Route: 048
     Dates: start: 20210810, end: 20210818
  7. LACIDOPHILIN [Concomitant]
     Route: 048
     Dates: start: 20210901
  8. HUOXIANG ZHENGQI SHUI [Concomitant]
     Indication: Influenza like illness
     Route: 048
     Dates: start: 20210817, end: 20210818
  9. COVID-19 VACCINE [Concomitant]
     Indication: COVID-19
     Dates: start: 20210422, end: 20210422
  10. SERTRALINE HYDROCHLORIDE [Concomitant]
     Active Substance: SERTRALINE HYDROCHLORIDE
     Dates: start: 20210221, end: 20210223
  11. IPRATROPIUM BROMIDE [Concomitant]
     Active Substance: IPRATROPIUM BROMIDE
     Indication: Prophylaxis
     Route: 055
     Dates: start: 20210224, end: 20210228
  12. CALCIUM GLUCONATE [Concomitant]
     Active Substance: CALCIUM GLUCONATE
     Route: 042
     Dates: start: 20210223, end: 20210223
  13. VITAMIN C [Concomitant]
     Active Substance: ASCORBIC ACID
     Route: 042
     Dates: start: 20210223, end: 20210225
  14. POTASSIUM CHLORIDE [Concomitant]
     Active Substance: POTASSIUM CHLORIDE
     Dates: start: 20210223, end: 20210223
  15. POTASSIUM CHLORIDE [Concomitant]
     Active Substance: POTASSIUM CHLORIDE
     Dates: start: 20210223, end: 20210225
  16. CEFUROXIME SODIUM [Concomitant]
     Active Substance: CEFUROXIME SODIUM
     Indication: Prophylaxis
     Route: 042
     Dates: start: 20210220, end: 20210223
  17. PARECOXIB SODIUM [Concomitant]
     Active Substance: PARECOXIB SODIUM
     Indication: Pain
     Dates: start: 20210223, end: 20210223
  18. PARECOXIB SODIUM [Concomitant]
     Active Substance: PARECOXIB SODIUM
     Route: 042
     Dates: start: 20210223, end: 20210228
  19. OMEPRAZOLE [Concomitant]
     Active Substance: OMEPRAZOLE
     Route: 042
     Dates: start: 20210223, end: 20210223
  20. OMEPRAZOLE [Concomitant]
     Active Substance: OMEPRAZOLE
     Route: 042
     Dates: start: 20210223, end: 20210225
  21. IRON SUCROSE [Concomitant]
     Active Substance: IRON SUCROSE
     Indication: Anaemia
     Route: 042
     Dates: start: 20210223, end: 20210228
  22. RECOMBINANT HUMAN ERYTHROPOIETIN (UNK INGREDIENTS) [Concomitant]
     Indication: Anaemia
     Dosage: DOSE 10000 U
     Route: 055
     Dates: start: 20210223, end: 20210228
  23. TRANEXAMIC ACID [Concomitant]
     Active Substance: TRANEXAMIC ACID
     Indication: Haemostasis
     Dates: start: 20210220, end: 20210223
  24. FENTANYL HYDROCHLORIDE [Concomitant]
     Active Substance: FENTANYL HYDROCHLORIDE
     Indication: Pain
     Dates: start: 20210223, end: 20210223
  25. FENTANYL CITRATE [Concomitant]
     Active Substance: FENTANYL CITRATE
     Route: 042
     Dates: start: 20210223, end: 20210223
  26. ONDANSETRON HYDROCHLORIDE [Concomitant]
     Active Substance: ONDANSETRON HYDROCHLORIDE
     Indication: Prophylaxis
     Route: 030
     Dates: start: 20210223, end: 20210223
  27. ESTAZOLAM [Concomitant]
     Active Substance: ESTAZOLAM
     Indication: Depression
     Route: 048
     Dates: start: 20210224, end: 20210225
  28. ESTAZOLAM [Concomitant]
     Active Substance: ESTAZOLAM
     Indication: Prophylaxis
     Route: 048
     Dates: start: 20210227, end: 20210302

REACTIONS (1)
  - Haemophilic arthropathy [Not Recovered/Not Resolved]

NARRATIVE: CASE EVENT DATE: 20210218
